FAERS Safety Report 13052316 (Version 1)
Quarter: 2016Q4

REPORT INFORMATION
  Report Type: Spontaneous
  Country: CH (occurrence: CH)
  Receive Date: 20161221
  Receipt Date: 20161221
  Transmission Date: 20170207
  Serious: Yes (Other)
  Sender: FDA-Public Use
  Company Number: CH-TEVA-720748ISR

PATIENT
  Age: 74 Year
  Sex: Female
  Weight: 77 kg

DRUGS (13)
  1. KALCIPOS D3 [Concomitant]
     Dosage: 1 DOSAGE FORMS DAILY; NO DETAILS AVAILABLE
     Route: 048
  2. LEXOTANIL [Concomitant]
     Active Substance: BROMAZEPAM
     Dosage: 3 MILLIGRAM DAILY; STRENGTH: 3MG, NO DETAILS AVAILABLE
     Route: 048
  3. VI-DE 3 [Concomitant]
     Active Substance: CHOLECALCIFEROL
     Dosage: NO DETAILS AVAILABLE
     Route: 048
  4. PROLIA [Suspect]
     Active Substance: DENOSUMAB
     Dosage: CONTINOUS- LAST INJECTION IN OCT 2016)
     Route: 058
     Dates: start: 201510
  5. PROLIA [Suspect]
     Active Substance: DENOSUMAB
     Indication: OSTEOPOROSIS
     Route: 058
     Dates: start: 201311, end: 201408
  6. CIPRALEX [Suspect]
     Active Substance: ESCITALOPRAM OXALATE
     Indication: DEPRESSION
     Dosage: 5 MILLIGRAM DAILY; STRENGTH: 10MG, START DATE UNKNOWN, THERAPY ONGOING
     Route: 048
  7. PANTOPRAZOLE SODIUM. [Suspect]
     Active Substance: PANTOPRAZOLE SODIUM
     Dosage: 20 MILLIGRAM DAILY; ENTERIC, STRENGTH: 20MG, START DATE UNKNOWN, CONTINOUS
     Route: 048
  8. BEKUNIS BISACODYL [Concomitant]
     Indication: CONSTIPATION
     Dosage: 6 DOSAGE FORMS DAILY; NO DETAILS AVAILABLE
     Route: 048
  9. PONSTAN [Concomitant]
     Active Substance: MEFENAMIC ACID
     Dosage: 1 DOSAGE FORMS DAILY; NO DETAILS AVAILABLE
     Route: 048
  10. METOPROLOL. [Concomitant]
     Active Substance: METOPROLOL
     Dosage: 50 MILLIGRAM DAILY; NO DETAILS AVAILABLE
     Route: 048
  11. SIMVASTATIN. [Concomitant]
     Active Substance: SIMVASTATIN
     Dosage: .5 DOSAGE FORMS DAILY; NO DETAILS AVAILABLE
     Route: 048
  12. LOSARTAN. [Concomitant]
     Active Substance: LOSARTAN
     Dosage: 25 MILLIGRAM DAILY; NO DETAILS AVAILABLE,  STRENGTH 50 MG
     Route: 048
  13. TARGIN [Concomitant]
     Active Substance: NALOXONE HYDROCHLORIDE\OXYCODONE HYDROCHLORIDE
     Dosage: 2 DOSAGE FORMS DAILY; NO DETAILS AVAILABLE
     Route: 048

REACTIONS (4)
  - Rebound effect [Recovering/Resolving]
  - Bone density decreased [Recovering/Resolving]
  - Pelvic fracture [Not Recovered/Not Resolved]
  - Spinal fracture [Recovering/Resolving]

NARRATIVE: CASE EVENT DATE: 2015
